FAERS Safety Report 16354520 (Version 4)
Quarter: 2019Q3

REPORT INFORMATION
  Report Type: Report from Study
  Country: US (occurrence: US)
  Receive Date: 20190524
  Receipt Date: 20190816
  Transmission Date: 20191004
  Serious: Yes (Hospitalization, Other)
  Sender: FDA-Public Use
  Company Number: US-TAKEDA-2019TUS028040

PATIENT
  Sex: Female

DRUGS (2)
  1. PONATINIB [Suspect]
     Active Substance: PONATINIB
     Dosage: 30 MILLIGRAM, QD
     Route: 048
  2. PONATINIB [Suspect]
     Active Substance: PONATINIB
     Indication: ACUTE LYMPHOCYTIC LEUKAEMIA
     Dosage: 45 MILLIGRAM, QD
     Route: 048
     Dates: start: 20190419

REACTIONS (10)
  - Chest pain [Unknown]
  - Induration [Unknown]
  - Constipation [Unknown]
  - Thrombotic thrombocytopenic purpura [Unknown]
  - Toothache [Unknown]
  - Hyperglycaemia [Unknown]
  - Ecchymosis [Unknown]
  - Febrile neutropenia [Unknown]
  - Anxiety [Unknown]
  - Neuropathy peripheral [Unknown]
